FAERS Safety Report 8434149 (Version 8)
Quarter: 2012Q4

REPORT INFORMATION
  Report Type: Report from Study
  Country: NL (occurrence: NL)
  Receive Date: 20120301
  Receipt Date: 20121225
  Transmission Date: 20130627
  Serious: Yes (Hospitalization, Disabling, Other)
  Sender: FDA-Public Use
  Company Number: NL-BIOGENIDEC-2012BI005290

PATIENT
  Age: 45 Year
  Sex: Female

DRUGS (2)
  1. TYSABRI [Suspect]
     Indication: RELAPSING-REMITTING MULTIPLE SCLEROSIS
     Route: 042
     Dates: start: 20080521, end: 20120130
  2. FLUTICASON PROPRIONATE [Concomitant]
     Indication: HYPOACUSIS
     Route: 045
     Dates: start: 20120123, end: 20120207

REACTIONS (5)
  - Uveitis [Recovered/Resolved with Sequelae]
  - Herpes simplex ophthalmic [Recovered/Resolved with Sequelae]
  - Retinal injury [Unknown]
  - Herpes zoster [Unknown]
  - Hypoacusis [Not Recovered/Not Resolved]
